FAERS Safety Report 16569707 (Version 1)
Quarter: 2019Q3

REPORT INFORMATION
  Report Type: Spontaneous
  Country: JP (occurrence: JP)
  Receive Date: 20190715
  Receipt Date: 20190715
  Transmission Date: 20191004
  Serious: Yes (Other)
  Sender: FDA-Public Use
  Company Number: JP-TEVA-2019-JP-004170J

PATIENT
  Sex: Female

DRUGS (1)
  1. CONSTAN 0.4MG.TABLETS [Suspect]
     Active Substance: ALPRAZOLAM
     Indication: PRODUCT USED FOR UNKNOWN INDICATION
     Dosage: .2 MILLIGRAM DAILY;
     Route: 065

REACTIONS (3)
  - Visual impairment [Unknown]
  - Wrong technique in product usage process [Unknown]
  - Cataract [Unknown]
